FAERS Safety Report 5969994-7 (Version None)
Quarter: 2008Q4

REPORT INFORMATION
  Report Type: 
  Country: None (occurrence: None)
  Receive Date: 20081126
  Receipt Date: 20081121
  Transmission Date: 20090506
  Serious: Yes (Hospitalization)
  Sender: FDA-Public Use
  Company Number: US-AMGEN-US317773

PATIENT
  Sex: Female
  Weight: 52.2 kg

DRUGS (11)
  1. PANITUMUMAB [Suspect]
     Indication: SQUAMOUS CELL CARCINOMA
     Route: 042
     Dates: start: 20080527
  2. TAXOTERE [Concomitant]
     Dates: start: 20080527, end: 20080909
  3. CISPLATIN [Concomitant]
     Dates: start: 20080527, end: 20080909
  4. COUMADIN [Concomitant]
  5. GUAIFENESIN [Concomitant]
  6. PHENYLEPHRINE, CHLORPHENIRAMINE + PYRILAMINE [Concomitant]
  7. HYDROCODONE BITARTRATE [Concomitant]
  8. PREVACID [Concomitant]
  9. COMPAZINE [Concomitant]
  10. LORTAB [Concomitant]
  11. OXYCODONE HCL [Concomitant]

REACTIONS (1)
  - TRANSAMINASES INCREASED [None]
